FAERS Safety Report 10258854 (Version 1)
Quarter: 2014Q2

REPORT INFORMATION
  Report Type: Spontaneous
  Country: US (occurrence: None)
  Receive Date: 20140623
  Receipt Date: 20140623
  Transmission Date: 20141212
  Serious: No
  Sender: FDA-Public Use
  Company Number: 2014-00077

PATIENT
  Sex: Female
  Weight: 54.43 kg

DRUGS (2)
  1. ZICAM [Suspect]
     Indication: NASOPHARYNGITIS
     Dosage: ORALLY, 1-2 TABLETS DAILY
     Route: 048
     Dates: start: 201312
  2. ZICAM [Suspect]
     Indication: INFLUENZA
     Dosage: ORALLY, 1-2 TABLETS DAILY
     Route: 048
     Dates: start: 201312

REACTIONS (2)
  - Ageusia [None]
  - Drug ineffective [None]
